FAERS Safety Report 7365230-8 (Version None)
Quarter: 2011Q1

REPORT INFORMATION
  Report Type: 
  Country: None (occurrence: None)
  Receive Date: 20110322
  Receipt Date: 20110311
  Transmission Date: 20110831
  Serious: Yes (Hospitalization)
  Sender: FDA-Public Use
  Company Number: JP-AMGEN-JPNSP2011011317

PATIENT
  Age: 82 Year
  Sex: Male

DRUGS (4)
  1. ENBREL [Suspect]
     Indication: RHEUMATOID ARTHRITIS
     Dosage: 25 MG, WEEKLY
     Route: 058
     Dates: start: 20060301
  2. ENBREL [Suspect]
     Dosage: 25 MG, 2X/WEEK
     Route: 058
     Dates: start: 20060327
  3. ENBREL [Suspect]
     Dosage: 25 MG, 1X/DAY
     Route: 058
     Dates: start: 20071106, end: 20101227
  4. ENBREL [Suspect]
     Dosage: 25 MG, QWK
     Route: 058
     Dates: start: 20081101

REACTIONS (7)
  - CARDIOMEGALY [None]
  - PLEURAL EFFUSION [None]
  - INTERSTITIAL LUNG DISEASE [None]
  - BRONCHOPNEUMONIA [None]
  - INFLAMMATION [None]
  - CARDIAC FAILURE [None]
  - PNEUMONIA [None]
